FAERS Safety Report 7098782-6 (Version None)
Quarter: 2010Q4

REPORT INFORMATION
  Report Type: 
  Country: None (occurrence: None)
  Receive Date: 20101112
  Receipt Date: 20101108
  Transmission Date: 20110411
  Serious: Yes (Death, Hospitalization)
  Sender: FDA-Public Use
  Company Number: US-GILEAD-2010-0030087

PATIENT
  Sex: Female
  Weight: 89.892 kg

DRUGS (8)
  1. LETAIRIS [Suspect]
     Indication: PULMONARY ARTERIAL HYPERTENSION
     Route: 048
     Dates: start: 20100401
  2. SYMBICORT [Concomitant]
  3. HYDROCHLOROT [Concomitant]
  4. ALENDRONATE SODIUM [Concomitant]
  5. ALBUTEROL [Concomitant]
  6. AZATHIOPRINE [Concomitant]
  7. RANITIDINE [Concomitant]
  8. HYDROMORPHONE HCL [Concomitant]

REACTIONS (3)
  - DYSPNOEA [None]
  - OEDEMA PERIPHERAL [None]
  - PULMONARY HYPERTENSION [None]
